FAERS Safety Report 16756231 (Version 6)
Quarter: 2025Q3

REPORT INFORMATION
  Report Type: Spontaneous
  Country: EU (occurrence: EU)
  Receive Date: 20190829
  Receipt Date: 20250801
  Transmission Date: 20251021
  Serious: Yes (Death, Hospitalization, Other)
  Sender: MYLAN
  Company Number: EU-BLUEFISH PHARMACEUTICALS AB-2019BF000820

PATIENT
  Age: 6 Year
  Sex: Male

DRUGS (48)
  1. VORICONAZOLE [Suspect]
     Active Substance: VORICONAZOLE
     Indication: Product used for unknown indication
  2. VORICONAZOLE [Suspect]
     Active Substance: VORICONAZOLE
     Route: 065
  3. VORICONAZOLE [Suspect]
     Active Substance: VORICONAZOLE
     Route: 065
  4. VORICONAZOLE [Suspect]
     Active Substance: VORICONAZOLE
  5. LEVOFLOXACIN [Suspect]
     Active Substance: LEVOFLOXACIN
     Indication: Prophylaxis
  6. LEVOFLOXACIN [Suspect]
     Active Substance: LEVOFLOXACIN
     Indication: Chemotherapy
     Route: 065
  7. LEVOFLOXACIN [Suspect]
     Active Substance: LEVOFLOXACIN
     Route: 065
  8. LEVOFLOXACIN [Suspect]
     Active Substance: LEVOFLOXACIN
  9. CYTARABINE [Suspect]
     Active Substance: CYTARABINE
     Indication: Acute myeloid leukaemia
  10. CYTARABINE [Suspect]
     Active Substance: CYTARABINE
     Indication: Chemotherapy
     Route: 065
  11. CYTARABINE [Suspect]
     Active Substance: CYTARABINE
     Route: 065
  12. CYTARABINE [Suspect]
     Active Substance: CYTARABINE
  13. TEICOPLANIN [Suspect]
     Active Substance: TEICOPLANIN
     Indication: Product used for unknown indication
  14. TEICOPLANIN [Suspect]
     Active Substance: TEICOPLANIN
     Route: 065
  15. TEICOPLANIN [Suspect]
     Active Substance: TEICOPLANIN
     Route: 065
  16. TEICOPLANIN [Suspect]
     Active Substance: TEICOPLANIN
  17. VANCOMYCIN [Suspect]
     Active Substance: VANCOMYCIN
     Indication: Product used for unknown indication
  18. VANCOMYCIN [Suspect]
     Active Substance: VANCOMYCIN
     Route: 065
  19. VANCOMYCIN [Suspect]
     Active Substance: VANCOMYCIN
     Route: 065
  20. VANCOMYCIN [Suspect]
     Active Substance: VANCOMYCIN
  21. FLUDARABINE [Suspect]
     Active Substance: FLUDARABINE PHOSPHATE
     Indication: Acute myeloid leukaemia
  22. FLUDARABINE [Suspect]
     Active Substance: FLUDARABINE PHOSPHATE
     Indication: Chemotherapy
     Route: 065
  23. FLUDARABINE [Suspect]
     Active Substance: FLUDARABINE PHOSPHATE
     Route: 065
  24. FLUDARABINE [Suspect]
     Active Substance: FLUDARABINE PHOSPHATE
  25. MICAFUNGIN [Suspect]
     Active Substance: MICAFUNGIN SODIUM
     Indication: Prophylaxis
     Dosage: 4 MG/KG, QD, ONCE DAILY (65 MG)
     Dates: start: 20170410
  26. MICAFUNGIN [Suspect]
     Active Substance: MICAFUNGIN SODIUM
     Dosage: 4 MG/KG, QD, ONCE DAILY (65 MG)
     Route: 042
     Dates: start: 20170410
  27. MICAFUNGIN [Suspect]
     Active Substance: MICAFUNGIN SODIUM
     Dosage: 4 MG/KG, QD, ONCE DAILY (65 MG)
     Route: 042
     Dates: start: 20170410
  28. MICAFUNGIN [Suspect]
     Active Substance: MICAFUNGIN SODIUM
     Dosage: 4 MG/KG, QD, ONCE DAILY (65 MG)
     Dates: start: 20170410
  29. METRONIDAZOLE [Suspect]
     Active Substance: METRONIDAZOLE
     Indication: Appendicitis
  30. METRONIDAZOLE [Suspect]
     Active Substance: METRONIDAZOLE
     Route: 065
  31. METRONIDAZOLE [Suspect]
     Active Substance: METRONIDAZOLE
     Route: 065
  32. METRONIDAZOLE [Suspect]
     Active Substance: METRONIDAZOLE
  33. MEROPENEM [Suspect]
     Active Substance: MEROPENEM
     Indication: Appendicitis
  34. MEROPENEM [Suspect]
     Active Substance: MEROPENEM
     Route: 065
  35. MEROPENEM [Suspect]
     Active Substance: MEROPENEM
     Route: 065
  36. MEROPENEM [Suspect]
     Active Substance: MEROPENEM
  37. COTRIMOXAZOLE [Suspect]
     Active Substance: SULFAMETHOXAZOLE\TRIMETHOPRIM
     Indication: Product used for unknown indication
  38. COTRIMOXAZOLE [Suspect]
     Active Substance: SULFAMETHOXAZOLE\TRIMETHOPRIM
     Route: 065
  39. COTRIMOXAZOLE [Suspect]
     Active Substance: SULFAMETHOXAZOLE\TRIMETHOPRIM
     Route: 065
  40. COTRIMOXAZOLE [Suspect]
     Active Substance: SULFAMETHOXAZOLE\TRIMETHOPRIM
  41. AMBISOME [Suspect]
     Active Substance: AMPHOTERICIN B
     Indication: Product used for unknown indication
  42. AMBISOME [Suspect]
     Active Substance: AMPHOTERICIN B
     Route: 042
  43. AMBISOME [Suspect]
     Active Substance: AMPHOTERICIN B
     Route: 042
  44. AMBISOME [Suspect]
     Active Substance: AMPHOTERICIN B
  45. ANASTROZOLE [Suspect]
     Active Substance: ANASTROZOLE
     Indication: Appendicitis
  46. ANASTROZOLE [Suspect]
     Active Substance: ANASTROZOLE
     Route: 065
  47. ANASTROZOLE [Suspect]
     Active Substance: ANASTROZOLE
     Route: 065
  48. ANASTROZOLE [Suspect]
     Active Substance: ANASTROZOLE

REACTIONS (9)
  - Condition aggravated [Fatal]
  - Multiple organ dysfunction syndrome [Fatal]
  - Appendicitis [Fatal]
  - Geotrichum infection [Fatal]
  - Infection in an immunocompromised host [Fatal]
  - Contraindicated product administered [Unknown]
  - Product use in unapproved indication [Unknown]
  - Product use issue [Unknown]
  - Drug ineffective [Unknown]
